FAERS Safety Report 12314516 (Version 1)
Quarter: 2016Q2

REPORT INFORMATION
  Report Type: Spontaneous
  Country: US (occurrence: US)
  Receive Date: 20160428
  Receipt Date: 20160428
  Transmission Date: 20160815
  Serious: Yes (Hospitalization, Other)
  Sender: FDA-Public Use
  Company Number: US-GLAXOSMITHKLINE-US2016055827

PATIENT
  Age: 67 Year
  Sex: Male

DRUGS (8)
  1. ADVAIR DISKUS [Suspect]
     Active Substance: FLUTICASONE PROPIONATE\SALMETEROL XINAFOATE
     Indication: ASTHMA
     Dosage: 1 PUFF(S), BID
     Route: 055
     Dates: start: 2015, end: 201508
  2. PREDNISONE. [Concomitant]
     Active Substance: PREDNISONE
  3. ADVAIR DISKUS [Suspect]
     Active Substance: FLUTICASONE PROPIONATE\SALMETEROL XINAFOATE
     Dosage: UNK
     Dates: start: 201512
  4. ADVAIR DISKUS [Suspect]
     Active Substance: FLUTICASONE PROPIONATE\SALMETEROL XINAFOATE
     Dosage: UNK
     Dates: start: 201601
  5. FLONASE [Concomitant]
     Active Substance: FLUTICASONE PROPIONATE
  6. DILTIAZEM [Concomitant]
     Active Substance: DILTIAZEM
  7. ADVAIR DISKUS [Suspect]
     Active Substance: FLUTICASONE PROPIONATE\SALMETEROL XINAFOATE
     Dosage: UNK
     Dates: start: 201511
  8. METOPROLOL. [Concomitant]
     Active Substance: METOPROLOL

REACTIONS (15)
  - Dyspnoea [Recovered/Resolved]
  - Drug dose omission [Unknown]
  - Food allergy [Recovered/Resolved]
  - Cardiac disorder [Unknown]
  - Bronchitis [Not Recovered/Not Resolved]
  - Candida infection [Recovered/Resolved]
  - Underdose [Unknown]
  - Coronary artery bypass [Recovered/Resolved]
  - Cough [Not Recovered/Not Resolved]
  - Sinus disorder [Recovering/Resolving]
  - Ill-defined disorder [Recovering/Resolving]
  - Drug ineffective [Unknown]
  - Sleep disorder [Recovering/Resolving]
  - Stomatitis [Unknown]
  - Adverse event [Unknown]

NARRATIVE: CASE EVENT DATE: 2015
